FAERS Safety Report 24135289 (Version 1)
Quarter: 2024Q3

REPORT INFORMATION
  Report Type: Spontaneous
  Country: US (occurrence: US)
  Receive Date: 20240725
  Receipt Date: 20240725
  Transmission Date: 20241017
  Serious: Yes (Hospitalization, Other)
  Sender: UNITED THERAPEUTICS
  Company Number: US-UNITED THERAPEUTICS-UNT-2023-034370

PATIENT
  Age: 21 Year
  Sex: Female
  Weight: 51.701 kg

DRUGS (47)
  1. TYVASO DPI [Suspect]
     Active Substance: TREPROSTINIL
     Indication: Pulmonary arterial hypertension
     Dosage: 16 ?G, QID
  2. TYVASO DPI [Suspect]
     Active Substance: TREPROSTINIL
     Dosage: 80 ?G (16 ?G + 64 ?G), QID
  3. TYVASO DPI [Suspect]
     Active Substance: TREPROSTINIL
     Dosage: UNK
  4. TYVASO DPI [Suspect]
     Active Substance: TREPROSTINIL
     Indication: Pulmonary arterial hypertension
     Dosage: UNK
  5. TYVASO DPI [Suspect]
     Active Substance: TREPROSTINIL
     Indication: Pulmonary arterial hypertension
     Dosage: UNK
  6. VITAMIN D2 [Concomitant]
     Active Substance: ERGOCALCIFEROL
     Indication: Product used for unknown indication
     Dosage: UNK
  7. SODIUM CHLORIDE [Concomitant]
     Active Substance: SODIUM CHLORIDE
     Indication: Nasal congestion
     Dosage: 3 ML VIA NEBULIZER EVERY 4 HOURS AS NEEDED
  8. SODIUM CHLORIDE [Concomitant]
     Active Substance: SODIUM CHLORIDE
     Indication: Secretion discharge
  9. MOTRIN [Concomitant]
     Active Substance: IBUPROFEN
     Indication: Pain
     Dosage: 400 MG, Q6H AS NEEDED
  10. ALDACTONE [Concomitant]
     Active Substance: SPIRONOLACTONE
     Indication: Product used for unknown indication
     Dosage: 12.5 MG, QD
  11. LANOXIN [Concomitant]
     Active Substance: DIGOXIN
     Indication: Product used for unknown indication
     Dosage: 125 ?G, QHS
  12. MIRALAX [Concomitant]
     Active Substance: POLYETHYLENE GLYCOL 3350
     Indication: Product used for unknown indication
     Dosage: UNK
  13. CORTEF [Concomitant]
     Active Substance: HYDROCORTISONE
     Indication: Stress
     Dosage: 5 MG, TID
  14. CORTEF [Concomitant]
     Active Substance: HYDROCORTISONE
     Indication: Illness
  15. CORTEF [Concomitant]
     Active Substance: HYDROCORTISONE
     Indication: Injury
  16. LASIX [Concomitant]
     Active Substance: FUROSEMIDE
     Indication: Product used for unknown indication
     Dosage: 40 MG, QD
  17. DIGOX [Concomitant]
     Active Substance: DIGOXIN
     Indication: Product used for unknown indication
     Dosage: UNK
  18. VASOTEC [Concomitant]
     Active Substance: ENALAPRIL MALEATE
     Indication: Product used for unknown indication
     Dosage: 2.5 MG, BID
  19. SINGULAIR [Concomitant]
     Active Substance: MONTELUKAST SODIUM
     Indication: Product used for unknown indication
     Dosage: 10 MG, QHS
  20. AQUAPHOR [Concomitant]
     Active Substance: PETROLATUM
     Indication: Product used for unknown indication
     Dosage: UNK
  21. MUPIROCIN [Concomitant]
     Active Substance: MUPIROCIN
     Indication: Product used for unknown indication
     Dosage: UNK
  22. PROVENTIL [Concomitant]
     Active Substance: ALBUTEROL
     Indication: Product used for unknown indication
     Dosage: 1 VIAL BY NEBULIZER EVERY 4 HOURS AS NEEDED
  23. OPSUMIT [Concomitant]
     Active Substance: MACITENTAN
     Indication: Product used for unknown indication
     Dosage: 10 MG, QD
  24. TRI-LO-SPRINTEC [Concomitant]
     Active Substance: ETHINYL ESTRADIOL\NORGESTIMATE
     Indication: Product used for unknown indication
     Dosage: 1 TABLET (25 ?G, 0.18MG/0.215MG/0.25MG), QD
  25. VENTOLIN HFA [Concomitant]
     Active Substance: ALBUTEROL SULFATE
     Indication: Product used for unknown indication
     Dosage: UNK
  26. PRILOSEC [Concomitant]
     Active Substance: OMEPRAZOLE MAGNESIUM
     Indication: Product used for unknown indication
     Dosage: 20 MG, QD
  27. MAGNESIUM OXIDE [Concomitant]
     Active Substance: MAGNESIUM OXIDE
     Indication: Product used for unknown indication
     Dosage: 800 MG, QHS
  28. ATROVENT HFA [Concomitant]
     Active Substance: IPRATROPIUM BROMIDE
     Indication: Wheezing
     Dosage: 17 ?G PER ACTUATION, 2 PUFFS, BID
  29. ATROVENT HFA [Concomitant]
     Active Substance: IPRATROPIUM BROMIDE
     Indication: Secretion discharge
     Dosage: 0.02 %, 2.5 ML EVERY 6 HOURS AS NEEDED
  30. ATROVENT HFA [Concomitant]
     Active Substance: IPRATROPIUM BROMIDE
     Indication: Respiratory tract congestion
  31. CODEINE PHOSPHATE\GUAIFENESIN [Concomitant]
     Active Substance: CODEINE PHOSPHATE\GUAIFENESIN
     Indication: Product used for unknown indication
     Dosage: UNK
  32. FERROUS SULFATE [Concomitant]
     Active Substance: FERROUS SULFATE
     Indication: Product used for unknown indication
     Dosage: 325 MG, QD
  33. IRON\VITAMINS [Concomitant]
     Active Substance: IRON\VITAMINS
     Indication: Product used for unknown indication
     Dosage: UNK
  34. ZYRTEC [Concomitant]
     Active Substance: CETIRIZINE HYDROCHLORIDE
     Indication: Product used for unknown indication
     Dosage: 10 MG, QHS
  35. ADVAIR HFA [Concomitant]
     Active Substance: FLUTICASONE PROPIONATE\SALMETEROL XINAFOATE
     Indication: Product used for unknown indication
     Dosage: 230/21 MCG PER ACTUATION, INHALE 2 PUFFS BY MOUTH WITH SPACER TWICE DAILY (BID)
  36. TRIAMCINOLONE ACETONIDE [Concomitant]
     Active Substance: TRIAMCINOLONE ACETONIDE
     Indication: Product used for unknown indication
     Dosage: UNK
  37. PROZAC [Concomitant]
     Active Substance: FLUOXETINE HYDROCHLORIDE
     Indication: Product used for unknown indication
     Dosage: 10 MG, QD
  38. NORDITROPIN [Concomitant]
     Active Substance: SOMATROPIN
     Indication: Product used for unknown indication
     Dosage: PEN INJECTOR, 2.8 MG UNDER SKIN 6 DAYS EACH WEEK
  39. ADCIRCA [Concomitant]
     Active Substance: TADALAFIL
     Indication: Pulmonary hypertension
     Dosage: 40 MG, QD
  40. SYNTHROID [Concomitant]
     Active Substance: LEVOTHYROXINE SODIUM
     Indication: Product used for unknown indication
     Dosage: 88 ?G, QD
  41. TYLENOL [Concomitant]
     Active Substance: ACETAMINOPHEN
     Indication: Headache
     Dosage: 650 MG, Q6H AS NEEDED
  42. VITAMIN D3 [Concomitant]
     Active Substance: CHOLECALCIFEROL
     Indication: Product used for unknown indication
     Dosage: 50 MG, QD
  43. Certavite with antioxidants [Concomitant]
     Indication: Product used for unknown indication
     Dosage: 18 MG - 400 ?G, QD
  44. OXYGEN [Concomitant]
     Active Substance: OXYGEN
     Dosage: 2 L, ROUTE EVERY NIGHT AT BED TIME
  45. CEPHALEXIN [Concomitant]
     Active Substance: CEPHALEXIN
     Indication: Product used for unknown indication
     Dosage: UNK
  46. THICK IT 2 [Concomitant]
     Indication: Product used for unknown indication
     Dosage: UNK
  47. SOLU-CORTEF [Concomitant]
     Active Substance: HYDROCORTISONE SODIUM SUCCINATE
     Indication: Product used for unknown indication
     Dosage: UNK

REACTIONS (19)
  - Respiratory distress [Recovered/Resolved]
  - Acute respiratory failure [Unknown]
  - Pneumonia [Unknown]
  - Septic shock [Unknown]
  - Cellulitis [Unknown]
  - Sinusitis [Unknown]
  - Respiratory syncytial virus infection [Unknown]
  - Pulmonary artery dilatation [Unknown]
  - Pulmonary valve incompetence [Unknown]
  - Tricuspid valve incompetence [Unknown]
  - Right ventricular hypertension [Unknown]
  - Asthma [Unknown]
  - Weight decreased [Recovered/Resolved]
  - Dyspnoea exertional [Not Recovered/Not Resolved]
  - Right ventricular dysfunction [Unknown]
  - Right ventricular hypertrophy [Unknown]
  - Decreased appetite [Recovering/Resolving]
  - Scar [Unknown]
  - Right atrial dilatation [Unknown]

NARRATIVE: CASE EVENT DATE: 20221121
